FAERS Safety Report 9355580 (Version 4)
Quarter: 2013Q3

REPORT INFORMATION
  Report Type: Spontaneous
  Country: US (occurrence: US)
  Receive Date: 20130619
  Receipt Date: 20130909
  Transmission Date: 20140515
  Serious: Yes (Hospitalization, Other)
  Sender: FDA-Public Use
  Company Number: US-009507513-1306USA007460

PATIENT
  Age: 43 Year
  Sex: Male

DRUGS (5)
  1. REBETOL [Suspect]
     Indication: HEPATITIS C
     Dosage: UNK
     Route: 048
     Dates: start: 20130608, end: 20130728
  2. VICTRELIS [Suspect]
     Indication: HEPATITIS C
     Dosage: UNK
     Route: 048
     Dates: start: 20130705, end: 20130728
  3. PEGASYS [Suspect]
     Indication: HEPATITIS C
     Dosage: UNK
     Dates: start: 20130607, end: 20130728
  4. CYMBALTA [Suspect]
  5. METHADONE HYDROCHLORIDE [Concomitant]

REACTIONS (12)
  - Confusional state [Unknown]
  - Dyspnoea [Unknown]
  - Hypersensitivity [Unknown]
  - Serotonin syndrome [Unknown]
  - Gait disturbance [Unknown]
  - Influenza like illness [Unknown]
  - Headache [Unknown]
  - Weight decreased [Unknown]
  - Memory impairment [Unknown]
  - Poor quality sleep [Unknown]
  - Anxiety [Unknown]
  - Paranoia [Unknown]
